FAERS Safety Report 7934672-1 (Version None)
Quarter: 2011Q4

REPORT INFORMATION
  Report Type: 
  Country: None (occurrence: None)
  Receive Date: 20111122
  Receipt Date: 20111117
  Transmission Date: 20120403
  Serious: Yes (Disabling)
  Sender: FDA-Public Use
  Company Number: PR-MERCK-0805USA02807

PATIENT
  Age: 46 Year
  Sex: Female

DRUGS (1)
  1. FOSAMAX [Suspect]
     Indication: OSTEOPOROSIS
     Route: 048
     Dates: start: 20030601, end: 20070101

REACTIONS (25)
  - CHEST PAIN [None]
  - DEPRESSION [None]
  - GINGIVAL BLEEDING [None]
  - BONE LOSS [None]
  - ORAL INFECTION [None]
  - DRUG HYPERSENSITIVITY [None]
  - TOOTH LOSS [None]
  - PHLEBOLITH [None]
  - DENTAL CARIES [None]
  - DISCOMFORT [None]
  - TOOTH FRACTURE [None]
  - OEDEMA MOUTH [None]
  - HYPOTHYROIDISM [None]
  - ARTHRITIS [None]
  - PAIN IN JAW [None]
  - CARDIOVASCULAR DISORDER [None]
  - PALPITATIONS [None]
  - CARPAL TUNNEL SYNDROME [None]
  - JAW DISORDER [None]
  - SOFT TISSUE INJURY [None]
  - SLEEP APNOEA SYNDROME [None]
  - DYSLIPIDAEMIA [None]
  - ANXIETY [None]
  - THYROID NEOPLASM [None]
  - ARTHRALGIA [None]
